FAERS Safety Report 14611642 (Version 3)
Quarter: 2018Q2

REPORT INFORMATION
  Report Type: Spontaneous
  Country: DE (occurrence: DE)
  Receive Date: 20180308
  Receipt Date: 20180406
  Transmission Date: 20180711
  Serious: Yes (Hospitalization, Other)
  Sender: FDA-Public Use
  Company Number: DE-ABBVIE-18K-062-2277889-00

PATIENT
  Age: 74 Year
  Sex: Female

DRUGS (2)
  1. DUODOPA [Suspect]
     Active Substance: CARBIDOPA\LEVODOPA
     Indication: PARKINSON^S DISEASE
     Route: 050
     Dates: end: 2018
  2. DUODOPA [Suspect]
     Active Substance: CARBIDOPA\LEVODOPA
     Route: 050
     Dates: start: 2018

REACTIONS (15)
  - Stoma complication [Unknown]
  - Hypoventilation [Unknown]
  - Pleural effusion [Unknown]
  - Pneumoperitoneum [Unknown]
  - Pancreatic atrophy [Unknown]
  - Fluid intake reduced [Unknown]
  - Hypophagia [Unknown]
  - Flatulence [Unknown]
  - Arteriosclerosis [Unknown]
  - Acute abdomen [Unknown]
  - General physical health deterioration [Unknown]
  - Gastric perforation [Recovered/Resolved]
  - Device leakage [Unknown]
  - Device issue [Unknown]
  - Abdominal pain [Unknown]

NARRATIVE: CASE EVENT DATE: 20180202
